FAERS Safety Report 10963804 (Version 2)
Quarter: 2015Q2

REPORT INFORMATION
  Report Type: Spontaneous
  Country: US (occurrence: US)
  Receive Date: 20150328
  Receipt Date: 20150524
  Transmission Date: 20150821
  Serious: No
  Sender: FDA-Public Use
  Company Number: US-JNJFOC-20141007747

PATIENT
  Sex: Male
  Weight: 40.82 kg

DRUGS (6)
  1. FENTANYL TRANSDERMAL SYSTEM [Suspect]
     Active Substance: FENTANYL
     Indication: HYPOKINESIA
     Dosage: TWO 12.5 UG/HR PATCH
     Route: 062
     Dates: start: 201410
  2. FENTANYL TRANSDERMAL SYSTEM [Suspect]
     Active Substance: FENTANYL
     Indication: PAIN
     Dosage: TWO 12.5 UG/HR PATCH
     Route: 062
     Dates: start: 201410
  3. FENTANYL TRANSDERMAL SYSTEM [Suspect]
     Active Substance: FENTANYL
     Indication: PAIN
     Route: 062
     Dates: start: 2013, end: 201410
  4. FENTANYL TRANSDERMAL SYSTEM [Suspect]
     Active Substance: FENTANYL
     Indication: SURGERY
     Dosage: TWO 12.5 UG/HR PATCH
     Route: 062
     Dates: start: 201410
  5. FENTANYL TRANSDERMAL SYSTEM [Suspect]
     Active Substance: FENTANYL
     Indication: SURGERY
     Route: 062
     Dates: start: 2013, end: 201410
  6. FENTANYL TRANSDERMAL SYSTEM [Suspect]
     Active Substance: FENTANYL
     Indication: HYPOKINESIA
     Route: 062
     Dates: start: 2013, end: 201410

REACTIONS (1)
  - Pain [Not Recovered/Not Resolved]
